FAERS Safety Report 7919565-8 (Version None)
Quarter: 2011Q4

REPORT INFORMATION
  Report Type: 
  Country: None (occurrence: None)
  Receive Date: 20111117
  Receipt Date: 20111109
  Transmission Date: 20120403
  Serious: Yes (Other)
  Sender: FDA-Public Use
  Company Number: US-JNJFOC-20110810554

PATIENT
  Sex: Male
  Weight: 112.04 kg

DRUGS (4)
  1. METFORMIN HCL [Concomitant]
     Indication: BLOOD GLUCOSE INCREASED
     Route: 048
     Dates: start: 20110101
  2. INSULIN [Concomitant]
     Indication: BLOOD GLUCOSE INCREASED
     Route: 058
     Dates: start: 20110603
  3. INVEGA SUSTENNA [Suspect]
     Indication: SCHIZOPHRENIA, PARANOID TYPE
     Route: 030
     Dates: start: 20100923, end: 20110412
  4. KLONOPIN [Concomitant]
     Indication: ANXIETY
     Route: 065
     Dates: start: 20100923

REACTIONS (2)
  - WEIGHT INCREASED [None]
  - TYPE 1 DIABETES MELLITUS [None]
